FAERS Safety Report 5253460-0 (Version None)
Quarter: 2007Q1

REPORT INFORMATION
  Report Type: 
  Country: None (occurrence: None)
  Receive Date: 20070301
  Receipt Date: 20070222
  Transmission Date: 20070707
  Serious: Yes (Hospitalization)
  Sender: FDA-Public Use
  Company Number: GB-ROXANE LABORATORIES, INC-2007-BP-02555RO

PATIENT
  Age: 65 Year
  Sex: Female

DRUGS (4)
  1. DEXAMETHASONE [Suspect]
     Indication: ANGLE CLOSURE GLAUCOMA
     Route: 061
  2. PILOCARPINE [Suspect]
     Indication: ANGLE CLOSURE GLAUCOMA
     Route: 061
  3. ACETAZOLAMIDE [Suspect]
     Indication: ANGLE CLOSURE GLAUCOMA
     Route: 042
  4. IOPIDINE [Suspect]
     Indication: ANGLE CLOSURE GLAUCOMA
     Route: 061

REACTIONS (4)
  - MIOSIS [None]
  - RETINAL HAEMORRHAGE [None]
  - RETINOPATHY [None]
  - VISUAL ACUITY REDUCED [None]
